FAERS Safety Report 19455499 (Version 1)
Quarter: 2021Q2

REPORT INFORMATION
  Report Type: Spontaneous
  Country: US (occurrence: US)
  Receive Date: 20210623
  Receipt Date: 20210623
  Transmission Date: 20210717
  Serious: Yes (Hospitalization)
  Sender: FDA-Public Use
  Company Number: None

PATIENT
  Sex: Female

DRUGS (7)
  1. HYDROCHLORT [Concomitant]
  2. GLIMEPIRIDE. [Concomitant]
     Active Substance: GLIMEPIRIDE
  3. POTASSIUM [Concomitant]
     Active Substance: POTASSIUM
  4. CAPECITABINE 500MG TAB [Suspect]
     Active Substance: CAPECITABINE
     Indication: BREAST CANCER FEMALE
     Dosage: ?          OTHER ROUTE:PO?D1?14 OF 21 D CYCLE?
     Dates: start: 20210515
  5. MULTIVITAMIN DAILY [Concomitant]
  6. ASPIRIN. [Concomitant]
     Active Substance: ASPIRIN
  7. LOSARTAN POT [Concomitant]
     Active Substance: LOSARTAN POTASSIUM

REACTIONS (3)
  - Cardiac disorder [None]
  - Limb discomfort [None]
  - Therapy interrupted [None]
